FAERS Safety Report 7542688-2 (Version None)
Quarter: 2011Q2

REPORT INFORMATION
  Report Type: 
  Country: None (occurrence: None)
  Receive Date: 20110613
  Receipt Date: 20110530
  Transmission Date: 20111010
  Serious: Yes (Other)
  Sender: FDA-Public Use
  Company Number: US-JNJFOC-20110601624

PATIENT
  Age: 70 Year
  Sex: Female
  Weight: 53.07 kg

DRUGS (7)
  1. ASCORBIC ACID [Concomitant]
     Indication: SUPPLEMENTATION THERAPY
     Route: 065
     Dates: start: 19910101
  2. GINKGO BILOBA [Concomitant]
     Indication: DEMENTIA ALZHEIMER'S TYPE
     Route: 065
     Dates: start: 19860101
  3. LISTERINE TOTAL CARE PLUS WHITENING ANTICAVITY MOUTHWASH [Suspect]
     Indication: PRODUCT USED FOR UNKNOWN INDICATION
     Dosage: USED HALF CAPFUL TWICE A DAY,STARTING USING APPROXIMATELY THE MIDDLE OF APRIL 2011 FOR ABOUT 2WEEKS.
     Route: 048
  4. DIGOXIN [Concomitant]
     Indication: CARDIAC DISORDER
     Dates: start: 20010101
  5. PROAIR HFA [Concomitant]
     Indication: ASTHMA
     Dosage: AS NEEDED.
     Route: 065
     Dates: start: 20100101
  6. VITAMIN D [Concomitant]
     Indication: SUPPLEMENTATION THERAPY
     Route: 065
     Dates: start: 19860101
  7. SYMBICORT [Concomitant]
     Indication: ASTHMA
     Dosage: 1 PER DAY
     Route: 065
     Dates: start: 20100101

REACTIONS (3)
  - ORAL MUCOSAL EXFOLIATION [None]
  - OROPHARYNGEAL BLISTERING [None]
  - LIP EXFOLIATION [None]
